FAERS Safety Report 12951418 (Version 3)
Quarter: 2017Q1

REPORT INFORMATION
  Report Type: Report from Study
  Country: JP (occurrence: JP)
  Receive Date: 20161117
  Receipt Date: 20170302
  Transmission Date: 20170428
  Serious: Yes (Hospitalization)
  Sender: FDA-Public Use
  Company Number: JP-AMGEN-JPNCT2016145656

PATIENT
  Age: 66 Year
  Sex: Female
  Weight: 69.6 kg

DRUGS (13)
  1. ANTEBATE [Concomitant]
     Active Substance: BETAMETHASONE DIPROPIONATE
     Indication: SKIN DISORDER
     Dosage: UNK, TID
     Route: 062
  2. MARZULENE S COMBINATION [Concomitant]
     Active Substance: GLUTAMINE\SODIUM GUALENATE
     Indication: PROPHYLAXIS AGAINST GASTROINTESTINAL ULCER
     Dosage: 0.5 G, TID
     Route: 048
  3. 5-FU [Concomitant]
     Active Substance: FLUOROURACIL
     Indication: COLON CANCER
     Dosage: 600 MG/M2, Q2WK
     Route: 040
     Dates: start: 20160907, end: 20161102
  4. LOPEMIN [Concomitant]
     Active Substance: LOPERAMIDE HYDROCHLORIDE
     Indication: DIARRHOEA
     Dosage: 1 MG, BID
     Route: 048
  5. FEXOFENADINE HYDROCHLORIDE. [Concomitant]
     Active Substance: FEXOFENADINE HYDROCHLORIDE
     Indication: PRURITUS
     Dosage: 60 MG, BID
     Route: 048
  6. 5-FU [Concomitant]
     Active Substance: FLUOROURACIL
     Dosage: 3800 MG/M2, Q2WK
     Route: 041
     Dates: start: 20160907, end: 20161102
  7. LOXOPROFEN SODIUM [Concomitant]
     Active Substance: LOXOPROFEN SODIUM
     Indication: PAIN
     Dosage: 60 MG, UNK
     Route: 048
  8. CALCIUM LEVOFOLINATE [Concomitant]
     Active Substance: LEVOLEUCOVORIN CALCIUM
     Indication: COLON CANCER
     Dosage: 300 MG, Q2WEEKS
     Route: 041
     Dates: start: 20160907, end: 20161102
  9. NIFEDIPINE. [Concomitant]
     Active Substance: NIFEDIPINE
     Indication: HYPERTENSION
     Dosage: 20 MG, QD
     Route: 048
  10. PANITUMUMAB [Suspect]
     Active Substance: PANITUMUMAB
     Indication: COLON CANCER
     Dosage: 410 MG, Q2WK
     Route: 041
     Dates: start: 20160907, end: 20161102
  11. OXALIPLATIN. [Concomitant]
     Active Substance: OXALIPLATIN
     Indication: COLON CANCER
     Dosage: 130 MG, Q2WEEKS
     Route: 041
     Dates: start: 20160907, end: 20161102
  12. LANSOPRAZOLE. [Concomitant]
     Active Substance: LANSOPRAZOLE
     Indication: PROPHYLAXIS AGAINST GASTROINTESTINAL ULCER
     Dosage: 15 MG, QD
     Route: 048
  13. CODEINE PHOSPHATE [Concomitant]
     Active Substance: CODEINE PHOSPHATE
     Indication: ASTHMA
     Dosage: 3 G, TID
     Route: 048

REACTIONS (2)
  - Stomatitis [Unknown]
  - Dermatitis acneiform [Recovered/Resolved]

NARRATIVE: CASE EVENT DATE: 20161108
